FAERS Safety Report 13570507 (Version 1)
Quarter: 2017Q2

REPORT INFORMATION
  Report Type: Spontaneous
  Country: US (occurrence: US)
  Receive Date: 20170522
  Receipt Date: 20170522
  Transmission Date: 20170830
  Serious: No
  Sender: FDA-Public Use
  Company Number: US-ASTRAZENECA-2017SE51164

PATIENT
  Age: 23204 Day
  Sex: Female

DRUGS (3)
  1. CLONAZEPAM. [Concomitant]
     Active Substance: CLONAZEPAM
     Dates: start: 201609
  2. ZIPRASIDONE. [Concomitant]
     Active Substance: ZIPRASIDONE
     Indication: BIPOLAR II DISORDER
     Dosage: 60 ONCE A DAY
     Dates: start: 20170201
  3. SEROQUEL [Suspect]
     Active Substance: QUETIAPINE FUMARATE
     Dosage: 75.0MG UNKNOWN
     Route: 048

REACTIONS (5)
  - Pyrexia [Unknown]
  - Viral upper respiratory tract infection [Unknown]
  - Pain [Unknown]
  - Peripheral coldness [Unknown]
  - Chills [Unknown]

NARRATIVE: CASE EVENT DATE: 20170201
